FAERS Safety Report 10671532 (Version 4)
Quarter: 2015Q1

REPORT INFORMATION
  Report Type: Spontaneous
  Country: CN (occurrence: CN)
  Receive Date: 20141223
  Receipt Date: 20150114
  Transmission Date: 20150720
  Serious: Yes (Hospitalization)
  Sender: FDA-Public Use
  Company Number: CN-ASTRAZENECA-2014SE62059

PATIENT
  Age: 63 Year
  Sex: Female
  Weight: 56 kg

DRUGS (6)
  1. NEXIUM [Suspect]
     Active Substance: ESOMEPRAZOLE MAGNESIUM
     Indication: GASTROOESOPHAGEAL REFLUX DISEASE
     Route: 048
     Dates: start: 201312, end: 2014
  2. AMOXICILLIN. [Concomitant]
     Active Substance: AMOXICILLIN
     Route: 065
  3. NEXIUM [Suspect]
     Active Substance: ESOMEPRAZOLE MAGNESIUM
     Indication: BARRETT^S OESOPHAGUS
     Route: 048
     Dates: start: 201312, end: 2014
  4. CLARITHROMYCIN. [Concomitant]
     Active Substance: CLARITHROMYCIN
     Route: 065
  5. NEXIUM [Suspect]
     Active Substance: ESOMEPRAZOLE MAGNESIUM
     Indication: BARRETT^S OESOPHAGUS
     Route: 048
     Dates: start: 2014, end: 201404
  6. NEXIUM [Suspect]
     Active Substance: ESOMEPRAZOLE MAGNESIUM
     Indication: GASTROOESOPHAGEAL REFLUX DISEASE
     Route: 048
     Dates: start: 2014, end: 201404

REACTIONS (23)
  - Gastrointestinal disorder [Unknown]
  - Tracheitis [Recovering/Resolving]
  - Pneumonitis [Unknown]
  - White blood cell count decreased [Recovered/Resolved]
  - Gastrointestinal sounds abnormal [Recovered/Resolved]
  - Back pain [Unknown]
  - Cachexia [Unknown]
  - Wheezing [Recovered/Resolved]
  - Abnormal faeces [Recovered/Resolved]
  - Back pain [Recovered/Resolved]
  - Cough [Not Recovered/Not Resolved]
  - Myalgia [Recovered/Resolved]
  - Weight decreased [Recovered/Resolved]
  - Chest pain [Recovered/Resolved]
  - Asthenia [Unknown]
  - Drug dose omission [Unknown]
  - Intentional product misuse [Unknown]
  - Abdominal pain [Recovering/Resolving]
  - Asthenia [Recovered/Resolved]
  - Dyspnoea [Recovered/Resolved]
  - Dyspepsia [Unknown]
  - Bone pain [Unknown]
  - Functional gastrointestinal disorder [Unknown]

NARRATIVE: CASE EVENT DATE: 2014
